FAERS Safety Report 22223981 (Version 9)
Quarter: 2025Q2

REPORT INFORMATION
  Report Type: Spontaneous
  Country: US (occurrence: US)
  Receive Date: 20230418
  Receipt Date: 20250612
  Transmission Date: 20250717
  Serious: Yes (Hospitalization, Other)
  Sender: PFIZER
  Company Number: US-PFIZER INC-PV202300069820

PATIENT
  Age: 70 Year
  Sex: Female
  Weight: 88.9 kg

DRUGS (3)
  1. XELJANZ XR [Suspect]
     Active Substance: TOFACITINIB CITRATE
  2. XELJANZ XR [Suspect]
     Active Substance: TOFACITINIB CITRATE
     Dosage: 11 MG, ALTERNATE DAY
  3. XELJANZ XR [Suspect]
     Active Substance: TOFACITINIB CITRATE
     Dates: end: 202504

REACTIONS (14)
  - Localised infection [Unknown]
  - Infection [Unknown]
  - Rheumatoid arthritis [Unknown]
  - Neoplasm malignant [Unknown]
  - Intentional product misuse [Unknown]
  - Gait disturbance [Not Recovered/Not Resolved]
  - Confusional state [Unknown]
  - Accident [Unknown]
  - Chills [Unknown]
  - Piloerection [Unknown]
  - Anxiety [Recovered/Resolved]
  - Pain [Not Recovered/Not Resolved]
  - Illness [Unknown]
  - Mobility decreased [Not Recovered/Not Resolved]

NARRATIVE: CASE EVENT DATE: 20230505
